FAERS Safety Report 7433611-X (Version None)
Quarter: 2011Q2

REPORT INFORMATION
  Report Type: 
  Country: None (occurrence: None)
  Receive Date: 20110422
  Receipt Date: 20110411
  Transmission Date: 20111010
  Serious: Yes (Other)
  Sender: FDA-Public Use
  Company Number: US-GENENTECH-316830

PATIENT

DRUGS (3)
  1. RITUXIMAB [Suspect]
     Indication: DIFFUSE LARGE B-CELL LYMPHOMA
     Dosage: 250 MG/M2, UNK
     Route: 042
  2. IBRITUMOMAB TIUXETAN [Suspect]
     Indication: DIFFUSE LARGE B-CELL LYMPHOMA
     Dosage: 375 MG, UNK
     Route: 065
  3. RITUXIMAB [Suspect]
     Dosage: 375 MG/M2, UNK
     Route: 042

REACTIONS (6)
  - NEUTROPENIA [None]
  - THROMBOCYTOPENIA [None]
  - FEBRILE NEUTROPENIA [None]
  - ACUTE MYELOID LEUKAEMIA [None]
  - EXTRAVASATION [None]
  - MYELODYSPLASTIC SYNDROME [None]
